FAERS Safety Report 17930089 (Version 2)
Quarter: 2020Q3

REPORT INFORMATION
  Report Type: Spontaneous
  Country: DE (occurrence: DE)
  Receive Date: 20200623
  Receipt Date: 20200701
  Transmission Date: 20201103
  Serious: Yes (Life-Threatening, Hospitalization, Other)
  Sender: FDA-Public Use
  Company Number: NVSC2020DE101043

PATIENT
  Age: 70 Year
  Sex: Male
  Weight: 100 kg

DRUGS (13)
  1. AMLODIPINE [Interacting]
     Active Substance: AMLODIPINE BESYLATE
     Indication: PRODUCT USED FOR UNKNOWN INDICATION
     Dosage: 5 MG, QD
     Route: 065
  2. ATROPINE. [Suspect]
     Active Substance: ATROPINE
     Indication: BRADYCARDIA
     Dosage: UNK
     Route: 065
  3. CANDESARTAN. [Concomitant]
     Active Substance: CANDESARTAN
     Indication: PRODUCT USED FOR UNKNOWN INDICATION
     Dosage: 16 MG, QD
     Route: 065
  4. RIVAROXABAN [Concomitant]
     Active Substance: RIVAROXABAN
     Indication: PRODUCT USED FOR UNKNOWN INDICATION
     Dosage: 20 MG, QD
     Route: 065
  5. DRONEDARONE [Interacting]
     Active Substance: DRONEDARONE
     Indication: ATRIAL FIBRILLATION
     Dosage: 400 MG, Q12H
     Route: 065
  6. TIMOLOL. [Interacting]
     Active Substance: TIMOLOL
     Indication: PRODUCT USED FOR UNKNOWN INDICATION
     Dosage: UNK UNK, QD
     Route: 065
  7. NALOXONE [Concomitant]
     Active Substance: NALOXONE
     Indication: ATRIAL FIBRILLATION
     Dosage: UNK
     Route: 065
  8. BISOPROLOL [Suspect]
     Active Substance: BISOPROLOL
     Indication: PRODUCT USED FOR UNKNOWN INDICATION
     Dosage: 5 MG, QD
     Route: 065
  9. TAFLUPROST [Concomitant]
     Active Substance: TAFLUPROST
     Dosage: 15 MICROG/ML 0?0?1
     Route: 065
  10. GINKGO [Concomitant]
     Active Substance: GINKGO
     Indication: PRODUCT USED FOR UNKNOWN INDICATION
     Dosage: 200 MG 1X1 EVERY 2 DAYS
     Route: 065
  11. FLUMAZENIL. [Concomitant]
     Active Substance: FLUMAZENIL
     Indication: ATRIAL FIBRILLATION
     Dosage: UNK
     Route: 065
  12. ALFUZOSIN [Concomitant]
     Active Substance: ALFUZOSIN
     Indication: PRODUCT USED FOR UNKNOWN INDICATION
     Dosage: 10 MG, QD
     Route: 065
  13. TAFLUPROST [Concomitant]
     Active Substance: TAFLUPROST
     Indication: PRODUCT USED FOR UNKNOWN INDICATION
     Dosage: UNK UNK, QD
     Route: 065

REACTIONS (13)
  - Infection [Recovered/Resolved]
  - Oversensing [Recovered/Resolved]
  - Diastolic dysfunction [Recovered/Resolved]
  - Atrioventricular block second degree [Recovered/Resolved]
  - Device pacing issue [Unknown]
  - Bradycardia [Recovered/Resolved]
  - Metabolic disorder [Recovered/Resolved]
  - Drug ineffective [Unknown]
  - Drug interaction [Recovered/Resolved]
  - Ventricular hypertrophy [Recovered/Resolved]
  - Cardiovascular insufficiency [Recovered/Resolved]
  - Electrolyte imbalance [Recovered/Resolved]
  - Atrioventricular block [Recovered/Resolved]
